FAERS Safety Report 16706948 (Version 1)
Quarter: 2019Q3

REPORT INFORMATION
  Report Type: Spontaneous
  Country: FR (occurrence: FR)
  Receive Date: 20190815
  Receipt Date: 20190815
  Transmission Date: 20191004
  Serious: Yes (Hospitalization)
  Sender: FDA-Public Use
  Company Number: FR-TEVA-2019-FR-1092652

PATIENT
  Age: 26 Year
  Sex: Male
  Weight: 77 kg

DRUGS (4)
  1. AZITHROMYCINE ANHYDRE [Suspect]
     Active Substance: AZITHROMYCIN ANHYDROUS
     Indication: MYCOBACTERIUM ABSCESSUS INFECTION
     Dosage: 500MG
     Route: 048
     Dates: start: 20190524
  2. LAMPRENE [Suspect]
     Active Substance: CLOFAZIMINE
     Indication: MYCOBACTERIUM ABSCESSUS INFECTION
     Dosage: 100MG
     Route: 048
     Dates: start: 20190524
  3. VIMPAT [Suspect]
     Active Substance: LACOSAMIDE
     Indication: EPILEPSY
     Dosage: 200 MICROGRAM
     Route: 048
     Dates: start: 201905
  4. IMUKIN [Suspect]
     Active Substance: INTERFERON GAMMA
     Indication: IMMUNODEFICIENCY
     Dosage: 100G 3X/WEEK
     Route: 058
     Dates: start: 20190524, end: 20190603

REACTIONS (2)
  - Agranulocytosis [Recovered/Resolved]
  - Neutropenia [Recovering/Resolving]

NARRATIVE: CASE EVENT DATE: 20190530
